FAERS Safety Report 7498883-4 (Version None)
Quarter: 2011Q2

REPORT INFORMATION
  Report Type: 
  Country: None (occurrence: None)
  Receive Date: 20110524
  Receipt Date: 20110426
  Transmission Date: 20111010
  Serious: Yes (Hospitalization, Disabling)
  Sender: FDA-Public Use
  Company Number: US-BAYER-2011-025781

PATIENT
  Age: 44 Year
  Sex: Female
  Weight: 72.562 kg

DRUGS (27)
  1. CAFFEINE [Concomitant]
     Dosage: UNK
     Dates: start: 20030101
  2. DARVOCET-N 50 [Concomitant]
     Indication: PAIN
     Dosage: UNK UNK, PRN
     Route: 048
     Dates: start: 20040324
  3. TRAZODONE HCL [Concomitant]
     Dosage: 200 MG, HS
     Route: 048
     Dates: start: 20040415
  4. ALBUTEROL SULFATE AUTOHALER [Concomitant]
     Dosage: UNK
     Dates: start: 20090302
  5. SINGULAIR [Concomitant]
     Dosage: 10 MG, QD
     Route: 048
     Dates: start: 20090505
  6. TRICOR [Concomitant]
     Indication: LIPIDS INCREASED
     Dosage: UNK
     Dates: start: 20091004
  7. AGGRENOX [Concomitant]
     Dosage: UNK
     Dates: start: 20091004
  8. YAZ [Suspect]
  9. YASMIN [Suspect]
     Dosage: UNK
     Dates: start: 20090501, end: 20091001
  10. FUROSEMIDE [Concomitant]
     Dosage: 20 MG, PRN
     Route: 048
     Dates: start: 20050125
  11. RISPERIDONE [Concomitant]
     Dosage: 1 MG, HS
     Route: 048
     Dates: start: 20090814
  12. CONCERTA [Concomitant]
     Dosage: 27 MG, QD
     Route: 048
     Dates: start: 20090911
  13. YAZ [Suspect]
     Indication: PREMENSTRUAL SYNDROME
     Dosage: UNK
     Dates: start: 20080801, end: 20091001
  14. XANAX [Concomitant]
     Indication: ANXIETY
     Dosage: 2 MG, TID
     Route: 048
     Dates: start: 20030425
  15. LEXAPRO [Concomitant]
     Dosage: 40 MG, BID
     Route: 048
  16. PROAIR HFA [Concomitant]
  17. AMOXICILINA CLAV [Concomitant]
     Dosage: 875 MG, BID
     Route: 048
     Dates: start: 20090730
  18. ASPIRIN [Concomitant]
     Dosage: 325 MG, QD
     Route: 048
     Dates: start: 20091004
  19. CETIRIZINE HCL [Concomitant]
     Dosage: 10 MG, QD
     Route: 048
     Dates: start: 20090302
  20. ADVAIR DISKUS 100/50 [Concomitant]
     Dosage: UNK UNK, BID
     Dates: start: 20090505
  21. LORATADINE [Concomitant]
     Dosage: 10 MG, QD
     Route: 048
     Dates: start: 20090507
  22. FLEXERIL [Concomitant]
     Dosage: 10 MG, TID
     Route: 048
     Dates: start: 20090703
  23. BUTALBITAL, ASPIRIN, AND CAFFEINE [Concomitant]
     Dosage: 40 MG, QID
     Route: 048
     Dates: start: 20081121
  24. CLINDAMYCIN [Concomitant]
     Dosage: 150 MG, QID
     Route: 048
     Dates: start: 20090824
  25. CHANTIX [Concomitant]
     Dosage: UNK
     Dates: start: 20090830
  26. FISH OIL [Concomitant]
  27. CYCLOBENZAPRINE [Concomitant]
     Dosage: 10 MG, BID
     Route: 048
     Dates: start: 20070124

REACTIONS (8)
  - INJURY [None]
  - HEMIPLEGIA [None]
  - DEFORMITY [None]
  - VIITH NERVE PARALYSIS [None]
  - CEREBROVASCULAR ACCIDENT [None]
  - COGNITIVE DISORDER [None]
  - SPEECH DISORDER [None]
  - PAIN [None]
